FAERS Safety Report 6619695-7 (Version None)
Quarter: 2010Q1

REPORT INFORMATION
  Report Type: 
  Country: None (occurrence: None)
  Receive Date: 20100223
  Receipt Date: 20091208
  Transmission Date: 20100710
  Serious: No
  Sender: FDA-Public Use
  Company Number: 004273

PATIENT
  Sex: Female
  Weight: 83.9 kg

DRUGS (10)
  1. CIMZIA [Suspect]
     Indication: RHEUMATOID ARTHRITIS
     Dosage: SUBCUTANEOUS
     Route: 058
     Dates: start: 20091117
  2. PROMETHAZINE [Concomitant]
  3. PREMARIN [Concomitant]
  4. MORPHINE SULFATE [Concomitant]
  5. PLAQUENIL [Concomitant]
  6. FOLIC ACID [Concomitant]
  7. PROZAC /00724401/ [Concomitant]
  8. METHOTREXATE [Concomitant]
  9. ASPIRIN [Concomitant]
  10. PERI-COLACE [Concomitant]

REACTIONS (2)
  - ARTHRALGIA [None]
  - PAIN IN EXTREMITY [None]
